FAERS Safety Report 20494299 (Version 3)
Quarter: 2024Q1

REPORT INFORMATION
  Report Type: Other
  Country: US (occurrence: None)
  Receive Date: 20220221
  Receipt Date: 20240318
  Transmission Date: 20240410
  Serious: Yes (Hospitalization, Other)
  Sender: FDA-Public Use
  Company Number: US-ROCHE-3022678

PATIENT
  Age: 48 Year
  Sex: Female
  Weight: 68.1 kg

DRUGS (8)
  1. OCREVUS [Suspect]
     Active Substance: OCRELIZUMAB
     Indication: Relapsing multiple sclerosis
     Dosage: LAST INFUSION: 01/FEB/2023, NEXT INFUSION: 08/AUG/2023
     Route: 042
     Dates: end: 202301
  2. OCREVUS [Suspect]
     Active Substance: OCRELIZUMAB
     Dosage: INFUSE 300 MG DAY 1 AND DAY 15 OVER 3 HOURS THAN 600 MG OVER 4 HOURS
     Route: 042
  3. PFIZER-BIONTECH COVID-19 VACCINE [Suspect]
     Active Substance: TOZINAMERAN
     Indication: Product used for unknown indication
     Route: 065
     Dates: start: 2021
  4. TYLENOL [Concomitant]
     Active Substance: ACETAMINOPHEN
  5. AMITIZA [Concomitant]
     Active Substance: LUBIPROSTONE
  6. WELLBUTRIN [Concomitant]
     Active Substance: BUPROPION HYDROCHLORIDE
  7. LEVOTHYROXINE [Concomitant]
     Active Substance: LEVOTHYROXINE\LEVOTHYROXINE SODIUM
  8. ERGOCALCIFEROL [Concomitant]
     Active Substance: ERGOCALCIFEROL

REACTIONS (7)
  - Urinary tract infection [Recovered/Resolved]
  - COVID-19 [Unknown]
  - Sepsis [Unknown]
  - Seizure [Unknown]
  - Pyrexia [Unknown]
  - Feeling cold [Unknown]
  - Mental status changes [Unknown]

NARRATIVE: CASE EVENT DATE: 20211201
